FAERS Safety Report 22389381 (Version 1)
Quarter: 2023Q2

REPORT INFORMATION
  Report Type: Spontaneous
  Country: US (occurrence: US)
  Receive Date: 20230531
  Receipt Date: 20230531
  Transmission Date: 20230722
  Serious: Yes (Life-Threatening, Hospitalization, Other)
  Sender: FDA-Public Use
  Company Number: US-BRISTOL-MYERS SQUIBB COMPANY-2023-075818

PATIENT
  Sex: Male

DRUGS (2)
  1. OPDIVO [Suspect]
     Active Substance: NIVOLUMAB
     Indication: Small cell lung cancer
     Dosage: 180 MINUTE SESSION, 3 DAYS IN ROW
     Dates: start: 20230104
  2. YERVOY [Suspect]
     Active Substance: IPILIMUMAB
     Indication: Small cell lung cancer
     Dosage: 180 MINUTE SESSION, 3 DAYS IN ROW
     Dates: start: 20230104

REACTIONS (14)
  - Colitis [Unknown]
  - Cardiac disorder [Unknown]
  - Deep vein thrombosis [Unknown]
  - Hypotension [Unknown]
  - Sepsis [Unknown]
  - Dysphagia [Unknown]
  - Confusional state [Unknown]
  - Brain fog [Unknown]
  - Off label use [Unknown]
  - Nodule [Unknown]
  - Dehydration [Unknown]
  - Nausea [Unknown]
  - Vomiting [Unknown]
  - Off label use [Unknown]
